FAERS Safety Report 7927197-0 (Version None)
Quarter: 2011Q4

REPORT INFORMATION
  Report Type: 
  Country: None (occurrence: None)
  Receive Date: 20111118
  Receipt Date: 20111115
  Transmission Date: 20120403
  Serious: Yes (Hospitalization, Other)
  Sender: FDA-Public Use
  Company Number: US-BAYER-200932168NA

PATIENT
  Age: 64 Year
  Sex: Male

DRUGS (10)
  1. NEXAVAR [Suspect]
     Dosage: 4 PILLS A DAY ALTERNATE 3 PILLS A DAY
  2. METOPROLOL SUCCINATE [Concomitant]
  3. ASPIRIN [Concomitant]
     Dosage: LOW DOSE
  4. NEXAVAR [Suspect]
     Route: 048
  5. NEXAVAR [Suspect]
     Route: 048
  6. NEXAVAR [Suspect]
     Dosage: 400MG QAM AND 200MG QPM - AS USED DOSE: 400/200 MG
     Route: 048
  7. NEXAVAR [Suspect]
     Dosage: 200 OR 400 MG (MORNING) AND 400 MG (EVENING)
  8. NEXAVAR [Suspect]
     Indication: HEPATIC NEOPLASM MALIGNANT
     Dosage: 400 MG, BID
     Route: 048
     Dates: start: 20090801
  9. LIPITOR [Concomitant]
  10. NORVASC [Concomitant]

REACTIONS (17)
  - PAIN IN EXTREMITY [None]
  - RHINORRHOEA [None]
  - ALOPECIA [None]
  - DYSPHAGIA [None]
  - GASTRIC HAEMORRHAGE [None]
  - DYSPHONIA [None]
  - DRY SKIN [None]
  - OEDEMA PERIPHERAL [None]
  - TONGUE BLISTERING [None]
  - DIARRHOEA [None]
  - SKIN EXFOLIATION [None]
  - HYPOGLYCAEMIA [None]
  - HAEMOGLOBIN DECREASED [None]
  - LYMPHADENOPATHY [None]
  - FAECES DISCOLOURED [None]
  - INTRA-ABDOMINAL HAEMORRHAGE [None]
  - FATIGUE [None]
